FAERS Safety Report 11410327 (Version 1)
Quarter: 2015Q3

REPORT INFORMATION
  Report Type: Spontaneous
  Country: US (occurrence: US)
  Receive Date: 20150824
  Receipt Date: 20150824
  Transmission Date: 20151125
  Serious: No
  Sender: FDA-Public Use
  Company Number: US-GLAXOSMITHKLINE-US2015GSK100882

PATIENT
  Sex: Male

DRUGS (1)
  1. HYCAMTIN [Suspect]
     Active Substance: TOPOTECAN HYDROCHLORIDE
     Indication: NEUROENDOCRINE CARCINOMA
     Dosage: 4 MG, CYC
     Route: 048
     Dates: start: 201506

REACTIONS (3)
  - Fatigue [Unknown]
  - Nausea [Unknown]
  - Appetite disorder [Unknown]

NARRATIVE: CASE EVENT DATE: 2015
